FAERS Safety Report 8904793 (Version 1)
Quarter: 2012Q4

REPORT INFORMATION
  Report Type: 
  Country: BR (occurrence: BR)
  Receive Date: 20121109
  Receipt Date: 20121109
  Transmission Date: 20130627
  Serious: Yes (Hospitalization, Other)
  Sender: FDA-Public Use
  Company Number: BR-ASTRAZENECA-2012SE83687

PATIENT
  Age: 16209 Day
  Sex: Female

DRUGS (1)
  1. SYMBICORT TURBUHALER [Suspect]
     Indication: DYSPNOEA
     Dosage: 160/4.5 MCG, UNKNOWN
     Route: 055

REACTIONS (6)
  - Pain [Unknown]
  - Dyspnoea [Unknown]
  - Syncope [Unknown]
  - Headache [Unknown]
  - Tremor [Unknown]
  - Drug ineffective [Unknown]
